FAERS Safety Report 17982702 (Version 1)
Quarter: 2020Q3

REPORT INFORMATION
  Report Type: Spontaneous
  Country: US (occurrence: US)
  Receive Date: 20200703
  Receipt Date: 20200703
  Transmission Date: 20201103
  Serious: No
  Sender: FDA-Public Use
  Company Number: None

PATIENT
  Age: 67 Year
  Sex: Female
  Weight: 106.1 kg

DRUGS (5)
  1. VERZENIO [Suspect]
     Active Substance: ABEMACICLIB
     Indication: BREAST CANCER
     Route: 048
     Dates: start: 20200529
  2. EXCEDRIN MIGRAINE 250?250?65 [Concomitant]
  3. ADVIL 200MG [Concomitant]
  4. XARELTO [Concomitant]
     Active Substance: RIVAROXABAN
  5. FEMARA [Concomitant]
     Active Substance: LETROZOLE

REACTIONS (3)
  - Abdominal distension [None]
  - Nausea [None]
  - Flatulence [None]

NARRATIVE: CASE EVENT DATE: 20200701
